FAERS Safety Report 5680715-8 (Version None)
Quarter: 2008Q1

REPORT INFORMATION
  Report Type: 
  Country: None (occurrence: None)
  Receive Date: 20080326
  Receipt Date: 20080311
  Transmission Date: 20080703
  Serious: Yes (Hospitalization)
  Sender: FDA-Public Use
  Company Number: JP-GENENTECH-250176

PATIENT
  Sex: Female

DRUGS (10)
  1. BEVACIZUMAB [Suspect]
     Indication: COLON CANCER METASTATIC
     Dosage: 5 MG/KG, QD
     Route: 042
     Dates: start: 20070911, end: 20071002
  2. IRINOTECAN HCL [Suspect]
     Indication: COLORECTAL CANCER METASTATIC
     Dosage: 150 MG/ML, QD
     Route: 042
     Dates: start: 20070911, end: 20071002
  3. FLUOROURACIL [Suspect]
     Indication: COLORECTAL CANCER METASTATIC
     Dosage: 400 MG/M2, QD
     Route: 042
     Dates: start: 20070911, end: 20071004
  4. ISOVORIN [Suspect]
     Indication: COLON CANCER METASTATIC
     Dosage: 200 MG/M2, QD
     Route: 041
     Dates: start: 20070911, end: 20071002
  5. CONCOMITANT UNSPECIFIED DRUG [Concomitant]
     Indication: DRUG USE FOR UNKNOWN INDICATION
     Dates: start: 20070315, end: 20071113
  6. ESCHERICHIA COLI [Concomitant]
     Indication: DRUG USE FOR UNKNOWN INDICATION
     Dates: start: 20071002, end: 20071008
  7. RINDERON [Concomitant]
     Indication: DRUG USE FOR UNKNOWN INDICATION
     Dosage: UNK, UNK
     Dates: start: 20071002, end: 20071008
  8. SAFFRON [Concomitant]
     Indication: DRUG USE FOR UNKNOWN INDICATION
     Dates: start: 20071002, end: 20071008
  9. VACCINE NOS [Concomitant]
     Indication: DRUG USE FOR UNKNOWN INDICATION
     Dates: start: 20070301, end: 20071113
  10. VOLTAREN [Concomitant]
     Indication: BACK PAIN
     Dosage: UNK, PRN

REACTIONS (2)
  - ANAEMIA [None]
  - EPISTAXIS [None]
